APPROVED DRUG PRODUCT: SUMATRIPTAN SUCCINATE
Active Ingredient: SUMATRIPTAN SUCCINATE
Strength: EQ 6MG BASE/0.5ML (EQ 12MG BASE/ML)
Dosage Form/Route: INJECTABLE;SUBCUTANEOUS
Application: A090641 | Product #001
Applicant: ONESOURCE SPECIALTY PTE LTD
Approved: Jul 28, 2010 | RLD: No | RS: No | Type: DISCN